FAERS Safety Report 7952112-3 (Version None)
Quarter: 2011Q4

REPORT INFORMATION
  Report Type: 
  Country: None (occurrence: None)
  Receive Date: 20111201
  Receipt Date: 20111125
  Transmission Date: 20120403
  Serious: Yes (Other)
  Sender: FDA-Public Use
  Company Number: PHHY2010CA51802

PATIENT
  Sex: Female

DRUGS (1)
  1. ZOLEDRONOC ACID [Suspect]
     Indication: OSTEOPOROSIS
     Dosage: 5 MG, UNK
     Route: 042
     Dates: start: 20080828

REACTIONS (9)
  - FOOT FRACTURE [None]
  - STRESS FRACTURE [None]
  - HEART RATE IRREGULAR [None]
  - MASTICATION DISORDER [None]
  - HEART RATE INCREASED [None]
  - OEDEMA PERIPHERAL [None]
  - PAIN IN JAW [None]
  - PAIN [None]
  - CHEST DISCOMFORT [None]
